FAERS Safety Report 7714284-5 (Version None)
Quarter: 2011Q3

REPORT INFORMATION
  Report Type: 
  Country: None (occurrence: None)
  Receive Date: 20110829
  Receipt Date: 20110819
  Transmission Date: 20111222
  Serious: No
  Sender: FDA-Public Use
  Company Number: US-BIOGENIDEC-2011BI032102

PATIENT
  Age: 52 Year
  Sex: Female

DRUGS (3)
  1. TYSABRI [Suspect]
     Indication: MULTIPLE SCLEROSIS
     Route: 042
     Dates: start: 20110817
  2. LEVOXYL [Concomitant]
     Indication: HYPOTHYROIDISM
  3. WELLBUTRIN [Concomitant]
     Indication: EMOTIONAL DISORDER

REACTIONS (8)
  - MYALGIA [None]
  - FEELING ABNORMAL [None]
  - FEAR [None]
  - MUSCULAR WEAKNESS [None]
  - MUSCULOSKELETAL STIFFNESS [None]
  - FEELING HOT [None]
  - DYSPHEMIA [None]
  - ABNORMAL DREAMS [None]
